FAERS Safety Report 14805800 (Version 4)
Quarter: 2018Q2

REPORT INFORMATION
  Report Type: Report from Study
  Country: None (occurrence: GB)
  Receive Date: 20180425
  Receipt Date: 20180601
  Transmission Date: 20180711
  Serious: Yes (Hospitalization)
  Sender: FDA-Public Use
  Company Number: GB-ABBVIE-18K-167-2330633-00

PATIENT
  Sex: Female

DRUGS (4)
  1. DUODOPA [Suspect]
     Active Substance: CARBIDOPA\LEVODOPA
     Indication: PARKINSON^S DISEASE
     Dosage: 1.5 CASSETTES DAILY?CONTINUOUS DOSE 3.1MLS/HOUR
     Route: 050
  2. DUODOPA [Suspect]
     Active Substance: CARBIDOPA\LEVODOPA
     Dosage: 1 CASSETTES DAILY?CONTINUOUS DOSE 3.5MLS/HOUR
     Route: 050
  3. PARACETAMOL [Suspect]
     Active Substance: ACETAMINOPHEN
     Indication: PRODUCT USED FOR UNKNOWN INDICATION
     Dosage: 2 TABLETS 9 TIMES
     Route: 065
  4. DUODOPA [Suspect]
     Active Substance: CARBIDOPA\LEVODOPA
     Dosage: 1.5 CASSETTE DAILY?CONTINUOUS DOSE DECREASED BY 0.2MLS/ HOUR ON BOTH NIGHT AND DAY PUMP
     Route: 050

REACTIONS (15)
  - Discomfort [Unknown]
  - Pain [Unknown]
  - Malaise [Recovered/Resolved]
  - Tremor [Unknown]
  - Drug abuse [Unknown]
  - Poor quality sleep [Unknown]
  - Chest pain [Unknown]
  - On and off phenomenon [Unknown]
  - Depressed mood [Unknown]
  - Incorrect dose administered [Unknown]
  - Sleep talking [Unknown]
  - Amnesia [Unknown]
  - Cognitive disorder [Unknown]
  - Abnormal dreams [Unknown]
  - Dystonia [Unknown]
